FAERS Safety Report 5753233-6 (Version None)
Quarter: 2008Q2

REPORT INFORMATION
  Report Type: 
  Country: None (occurrence: None)
  Receive Date: 20080530
  Receipt Date: 20070525
  Transmission Date: 20081010
  Serious: No
  Sender: FDA-Public Use
  Company Number: A0649690A

PATIENT
  Age: 44 Year
  Sex: Female

DRUGS (2)
  1. VENTOLIN [Suspect]
     Dosage: 120MCG AS REQUIRED
     Route: 055
     Dates: start: 20070426, end: 20070426
  2. NO CONCURRENT MEDICATION [Concomitant]

REACTIONS (4)
  - CHEST DISCOMFORT [None]
  - CHEST PAIN [None]
  - FEELING JITTERY [None]
  - HEART RATE INCREASED [None]
